FAERS Safety Report 16628022 (Version 4)
Quarter: 2019Q3

REPORT INFORMATION
  Report Type: Spontaneous
  Country: US (occurrence: US)
  Receive Date: 20190724
  Receipt Date: 20190725
  Transmission Date: 20191004
  Serious: Yes (Other)
  Sender: FDA-Public Use
  Company Number: US-GILEAD-2019-0419528

PATIENT
  Age: 48 Year
  Sex: Female

DRUGS (2)
  1. CARVEDILOL. [Concomitant]
     Active Substance: CARVEDILOL
  2. RANEXA [Suspect]
     Active Substance: RANOLAZINE
     Indication: VENTRICULAR EXTRASYSTOLES
     Dosage: 500 MG, BID
     Route: 048
     Dates: start: 201705

REACTIONS (14)
  - Cataract [Not Recovered/Not Resolved]
  - Chest discomfort [Unknown]
  - Lens discolouration [Not Recovered/Not Resolved]
  - Ejection fraction abnormal [Unknown]
  - Dyspnoea [Unknown]
  - Cardiac disorder [Unknown]
  - Product dose omission [Unknown]
  - Off label use [Unknown]
  - Gastrooesophageal reflux disease [Not Recovered/Not Resolved]
  - Palpitations [Unknown]
  - Eye disorder [Unknown]
  - Foot fracture [Not Recovered/Not Resolved]
  - Pain [Not Recovered/Not Resolved]
  - Poor quality sleep [Not Recovered/Not Resolved]

NARRATIVE: CASE EVENT DATE: 2018
